FAERS Safety Report 7482474-5 (Version None)
Quarter: 2011Q2

REPORT INFORMATION
  Report Type: 
  Country: None (occurrence: None)
  Receive Date: 20110516
  Receipt Date: 20110429
  Transmission Date: 20111010
  Serious: No
  Sender: FDA-Public Use
  Company Number: US-B.I. PHARMACEUTICALS,INC./RIDGEFIELD-2011-BP-12139BP

PATIENT
  Age: 69 Year
  Sex: Female

DRUGS (1)
  1. MICARDIS [Suspect]
     Indication: HYPERTENSION
     Dosage: 40 MG
     Route: 048
     Dates: start: 20060101, end: 20110427

REACTIONS (20)
  - VISUAL IMPAIRMENT [None]
  - HEART RATE IRREGULAR [None]
  - APHONIA [None]
  - PAIN IN EXTREMITY [None]
  - THROAT IRRITATION [None]
  - FEELING ABNORMAL [None]
  - BACK PAIN [None]
  - MUSCLE SPASMS [None]
  - LETHARGY [None]
  - DYSURIA [None]
  - DEAFNESS [None]
  - BLOOD PRESSURE ABNORMAL [None]
  - PAIN [None]
  - VERTIGO [None]
  - BURNING SENSATION [None]
  - POLLAKIURIA [None]
  - UNEVALUABLE EVENT [None]
  - GASTROOESOPHAGEAL REFLUX DISEASE [None]
  - NAUSEA [None]
  - GALLBLADDER DISORDER [None]
